FAERS Safety Report 15657479 (Version 21)
Quarter: 2021Q4

REPORT INFORMATION
  Report Type: Report from Study
  Country: US (occurrence: US)
  Receive Date: 20181126
  Receipt Date: 20211006
  Transmission Date: 20220303
  Serious: Yes (Hospitalization, Other)
  Sender: FDA-Public Use
  Company Number: US-TESARO-2018-TSO0775-US

PATIENT
  Age: 77 Year
  Sex: Female
  Weight: 76 kg

DRUGS (20)
  1. NIRAPARIB [Suspect]
     Active Substance: NIRAPARIB
     Indication: Fallopian tube cancer
     Dosage: 300 MG, QD (QPM)
     Route: 048
     Dates: start: 20180924
  2. NIRAPARIB [Suspect]
     Active Substance: NIRAPARIB
     Indication: Ovarian cancer stage IV
     Dosage: 300 MG
     Route: 048
     Dates: start: 20181024
  3. NIRAPARIB [Suspect]
     Active Substance: NIRAPARIB
     Indication: Ovarian cancer
     Dosage: 200 MG, QD
     Route: 048
     Dates: start: 20181116
  4. NIRAPARIB [Suspect]
     Active Substance: NIRAPARIB
     Dosage: 100 MG, PM WITHOUT FOOD
     Route: 048
     Dates: start: 201812
  5. NIRAPARIB [Suspect]
     Active Substance: NIRAPARIB
     Dosage: 100 MG, PM WITHOUT FOOD
     Route: 048
  6. NIRAPARIB [Suspect]
     Active Substance: NIRAPARIB
     Dosage: 100 MG, QD
     Dates: start: 20190721
  7. NIRAPARIB [Suspect]
     Active Substance: NIRAPARIB
     Dosage: 100 MG, QD
  8. NIRAPARIB [Suspect]
     Active Substance: NIRAPARIB
     Dosage: 100 MG, QD
  9. NIRAPARIB [Suspect]
     Active Substance: NIRAPARIB
     Dosage: 100 MG, QD
  10. NIRAPARIB [Suspect]
     Active Substance: NIRAPARIB
     Dosage: 100 MG, QD
     Route: 048
  11. NIRAPARIB [Suspect]
     Active Substance: NIRAPARIB
     Dosage: 100 MG, QD
  12. NIRAPARIB [Suspect]
     Active Substance: NIRAPARIB
     Dosage: 100 MG, QD
     Dates: end: 20210226
  13. NIRAPARIB [Suspect]
     Active Substance: NIRAPARIB
     Dosage: 100 MG, QD
     Dates: start: 20210325
  14. NIRAPARIB [Suspect]
     Active Substance: NIRAPARIB
     Dosage: 100 MG, QD
     Route: 048
     Dates: start: 2021
  15. NIRAPARIB [Suspect]
     Active Substance: NIRAPARIB
     Dosage: 100 MG, QD
     Route: 048
     Dates: start: 2021
  16. REMERON [Suspect]
     Active Substance: MIRTAZAPINE
     Indication: Seasonal affective disorder
     Dosage: UNK
  17. KEFLEX [Concomitant]
     Active Substance: CEPHALEXIN
     Indication: Product used for unknown indication
     Dosage: UNK
  18. IRON [Concomitant]
     Active Substance: IRON
     Indication: Product used for unknown indication
     Dosage: UNK
  19. LISINOPRIL [Concomitant]
     Active Substance: LISINOPRIL
     Indication: Product used for unknown indication
     Dosage: UNK
  20. MELATONIN [Concomitant]
     Active Substance: MELATONIN
     Indication: Product used for unknown indication
     Dosage: UNK

REACTIONS (36)
  - Behaviour disorder [Recovered/Resolved]
  - Surgery [Unknown]
  - Renal impairment [Unknown]
  - Red blood cell count decreased [Unknown]
  - Haemoglobin decreased [Not Recovered/Not Resolved]
  - Wrist fracture [Recovering/Resolving]
  - Thyroid disorder [Unknown]
  - Hunger [Recovered/Resolved]
  - Increased appetite [Recovered/Resolved]
  - Sinus disorder [Unknown]
  - Impaired healing [Recovering/Resolving]
  - Seasonal affective disorder [Recovering/Resolving]
  - Fall [Not Recovered/Not Resolved]
  - Fatigue [Not Recovered/Not Resolved]
  - Head discomfort [Unknown]
  - Constipation [Recovered/Resolved]
  - Hypertension [Recovered/Resolved]
  - Dizziness [Unknown]
  - Nasopharyngitis [Unknown]
  - Nausea [Recovering/Resolving]
  - Insomnia [Recovering/Resolving]
  - Peripheral swelling [Unknown]
  - Limb injury [Unknown]
  - Appetite disorder [Unknown]
  - Cyst [Unknown]
  - Cyst rupture [Unknown]
  - Wound [Unknown]
  - Malaise [Unknown]
  - Decreased appetite [Recovering/Resolving]
  - Weight decreased [Unknown]
  - Thirst [Unknown]
  - Gastrointestinal motility disorder [Unknown]
  - Irritable bowel syndrome [Unknown]
  - Anxiety [Not Recovered/Not Resolved]
  - Increased upper airway secretion [Not Recovered/Not Resolved]
  - Condition aggravated [Unknown]

NARRATIVE: CASE EVENT DATE: 20180101
